FAERS Safety Report 14619351 (Version 3)
Quarter: 2018Q4

REPORT INFORMATION
  Report Type: Spontaneous
  Country: FR (occurrence: FR)
  Receive Date: 20180309
  Receipt Date: 20181029
  Transmission Date: 20190204
  Serious: Yes (Hospitalization, Other)
  Sender: FDA-Public Use
  Company Number: FR-BRISTOL-MYERS SQUIBB COMPANY-BMS-2017-121308

PATIENT
  Sex: Female
  Weight: 70 kg

DRUGS (16)
  1. NAPROXEN. [Concomitant]
     Active Substance: NAPROXEN
     Indication: ARTHRALGIA
     Dosage: 1DF- 550 UNIT NOS, AT A FREQUENCY OF 1 DAY
     Route: 065
  2. DERMOVAL                           /00008503/ [Concomitant]
     Indication: PRURITUS
     Route: 065
  3. DIPROSONE [Concomitant]
     Active Substance: BETAMETHASONE DIPROPIONATE
     Indication: PRURITUS
     Dosage: UNK
     Route: 065
     Dates: start: 2013, end: 201411
  4. AERIUS (DESLORATADINE) [Concomitant]
     Active Substance: DESLORATADINE
     Indication: PRURITUS
     Dosage: UNK
     Route: 065
  5. DERMOVAL                           /00008503/ [Concomitant]
     Indication: SKIN LESION
     Dosage: 0.05 %, BID
     Route: 065
     Dates: start: 2013, end: 201411
  6. INNOVAIR [Concomitant]
     Active Substance: BECLOMETHASONE DIPROPIONATE\FORMOTEROL
     Indication: ASTHMA
     Dosage: 1DF- 100/6 MCG, 1 DAY
     Route: 065
     Dates: start: 20130917
  7. DEXERYL                            /01579901/ [Concomitant]
     Active Substance: GLYCERIN\MINERAL OIL\PETROLATUM
     Indication: PRURITUS
     Dosage: 1DF- 1 TO 2 APPLICATIONS AT A FREQUNCY OF 1 DAY
     Route: 065
     Dates: start: 20130101
  8. VENTOLINE                          /00139502/ [Concomitant]
     Active Substance: ALBUTEROL SULFATE
     Indication: CHRONIC OBSTRUCTIVE PULMONARY DISEASE
     Dosage: 1DF- 1PUFF, 1 DAY
     Route: 065
     Dates: start: 20130917
  9. REBETOL [Suspect]
     Active Substance: RIBAVIRIN
     Indication: HEPATITIS C
     Dosage: 500 MG, BID, AT AN INTERVAL OF 1 DAY
     Route: 048
     Dates: start: 20140610, end: 20140805
  10. SOFOSBUVIR [Suspect]
     Active Substance: SOFOSBUVIR
     Indication: HEPATITIS C
     Dosage: 400 MG, QD AT AN INTERVAL OF 1 DAY
     Route: 065
     Dates: start: 20140610, end: 20141201
  11. AERIUS (DESLORATADINE) [Concomitant]
     Active Substance: DESLORATADINE
     Indication: SKIN LESION
     Dosage: 1DF-10 UNIT NOT SPECIFIED, 1 DAY
     Route: 048
     Dates: start: 2013, end: 201411
  12. DIPROSONE [Concomitant]
     Active Substance: BETAMETHASONE DIPROPIONATE
     Indication: SKIN LESION
     Dosage: 0.05 %, QD, AT A FREQUENCY OF 1 DAY
     Route: 065
     Dates: start: 20130101
  13. DACLATASVIR DIHYDROCHLORIDE [Suspect]
     Active Substance: DACLATASVIR DIHYDROCHLORIDE
     Indication: HEPATITIS C
     Dosage: 60 MG, QD, AT AN INTERVAL OF 1 DAY
     Route: 065
     Dates: start: 20140610, end: 20141201
  14. DEXERYL                            /01579901/ [Concomitant]
     Active Substance: GLYCERIN\MINERAL OIL\PETROLATUM
     Indication: SKIN LESION
     Dosage: UNK
     Route: 065
     Dates: start: 2013, end: 201411
  15. CORENITEC [Concomitant]
     Active Substance: ENALAPRIL\HYDROCHLOROTHIAZIDE
     Indication: HYPERTENSION
     Dosage: 1DF- 20/12.5, AT A INTERVAL OF 1 DAY
     Route: 065
     Dates: start: 2014
  16. LAMICTAL [Concomitant]
     Active Substance: LAMOTRIGINE
     Indication: AFFECTIVE DISORDER
     Dosage: 100 MG, QD
     Route: 065
     Dates: start: 2013

REACTIONS (9)
  - Eye haemorrhage [Recovered/Resolved with Sequelae]
  - Retinal exudates [Recovered/Resolved with Sequelae]
  - Vitreous haemorrhage [Unknown]
  - Choroidal detachment [Recovered/Resolved with Sequelae]
  - Subretinal haematoma [Recovered/Resolved with Sequelae]
  - Intraocular haematoma [Recovered/Resolved with Sequelae]
  - Retinal detachment [Recovered/Resolved with Sequelae]
  - Diarrhoea [Recovered/Resolved]
  - Pyrexia [Recovered/Resolved]

NARRATIVE: CASE EVENT DATE: 201410
